FAERS Safety Report 19447796 (Version 1)
Quarter: 2021Q2

REPORT INFORMATION
  Report Type: Spontaneous
  Country: KR (occurrence: KR)
  Receive Date: 20210622
  Receipt Date: 20210622
  Transmission Date: 20210717
  Serious: Yes (Life-Threatening, Other)
  Sender: FDA-Public Use
  Company Number: KR-TAKEDA-2021TJP041688

PATIENT
  Sex: Female

DRUGS (1)
  1. LANSTON LFDT [Suspect]
     Active Substance: LANSOPRAZOLE
     Indication: GASTRIC PH DECREASED
     Dosage: 30 MILLIGRAM, QD
     Route: 048

REACTIONS (1)
  - Anaphylactic shock [Recovering/Resolving]
